FAERS Safety Report 9118778 (Version 1)
Quarter: 2013Q1

REPORT INFORMATION
  Report Type: Spontaneous
  Country: US (occurrence: None)
  Receive Date: 20130221
  Receipt Date: 20130221
  Transmission Date: 20140127
  Serious: Yes (Hospitalization)
  Sender: FDA-Public Use
  Company Number: None

PATIENT
  Age: 62 Year
  Sex: Male

DRUGS (2)
  1. EXJADE 500MG NOVARTIS [Suspect]
     Indication: IRON OVERLOAD
     Route: 048
     Dates: start: 20130116, end: 20130121
  2. EXJADE 500MG NOVARTIS [Suspect]
     Indication: MENTAL STATUS CHANGES
     Route: 048
     Dates: start: 20130116, end: 20130121

REACTIONS (7)
  - Dizziness [None]
  - Chills [None]
  - Loss of consciousness [None]
  - Fall [None]
  - Ankle fracture [None]
  - Blood pressure decreased [None]
  - Skin disorder [None]
